APPROVED DRUG PRODUCT: LEVONORGESTREL
Active Ingredient: LEVONORGESTREL
Strength: 1.5MG
Dosage Form/Route: TABLET;ORAL
Application: A205329 | Product #001
Applicant: XIROMED PHARMA ESPANA SL
Approved: Sep 18, 2018 | RLD: No | RS: No | Type: OTC